FAERS Safety Report 10479364 (Version 1)
Quarter: 2014Q3

REPORT INFORMATION
  Report Type: Spontaneous
  Country: US (occurrence: US)
  Receive Date: 20140926
  Receipt Date: 20140926
  Transmission Date: 20150326
  Serious: No
  Sender: FDA-Public Use
  Company Number: US-TEVA-497493USA

PATIENT
  Sex: Female

DRUGS (2)
  1. PROAIR HFA [Suspect]
     Active Substance: ALBUTEROL SULFATE
     Indication: COUGH
     Route: 055
  2. ALBUTEROL INHALATION SOLUTION [Suspect]
     Active Substance: ALBUTEROL
     Indication: COUGH
     Route: 055

REACTIONS (2)
  - Oral discomfort [Unknown]
  - Paraesthesia oral [Unknown]
